FAERS Safety Report 7963872-X (Version None)
Quarter: 2011Q4

REPORT INFORMATION
  Report Type: 
  Country: None (occurrence: None)
  Receive Date: 20111208
  Receipt Date: 20110120
  Transmission Date: 20120403
  Serious: No
  Sender: FDA-Public Use
  Company Number: US-BAYER-2011-008034

PATIENT
  Age: 25 Year
  Sex: Female

DRUGS (1)
  1. MIRENA [Suspect]
     Indication: CONTRACEPTION
     Dosage: 20 ?G/D, CONT
     Route: 015
     Dates: start: 20101215, end: 20110301

REACTIONS (5)
  - VAGINAL HAEMORRHAGE [None]
  - DEVICE EXPULSION [None]
  - MENSTRUATION DELAYED [None]
  - GENITAL HAEMORRHAGE [None]
  - DEVICE DISLOCATION [None]
